FAERS Safety Report 12999656 (Version 17)
Quarter: 2022Q2

REPORT INFORMATION
  Report Type: Spontaneous
  Country: US (occurrence: US)
  Receive Date: 20161205
  Receipt Date: 20220510
  Transmission Date: 20220721
  Serious: No
  Sender: FDA-Public Use
  Company Number: US-PFIZER INC-2016555084

PATIENT
  Age: 74 Year
  Sex: Male
  Weight: 61.69 kg

DRUGS (20)
  1. VIAGRA [Interacting]
     Active Substance: SILDENAFIL CITRATE
     Indication: Erectile dysfunction
     Dosage: 25 MG
     Route: 048
  2. VIAGRA [Interacting]
     Active Substance: SILDENAFIL CITRATE
     Dosage: 50 MG
     Route: 048
  3. VIAGRA [Interacting]
     Active Substance: SILDENAFIL CITRATE
     Dosage: 100 MG, AS NEEDED
     Route: 048
  4. VIAGRA [Interacting]
     Active Substance: SILDENAFIL CITRATE
     Dosage: 100 MG, WEEKLY
     Route: 048
  5. VIAGRA [Interacting]
     Active Substance: SILDENAFIL CITRATE
     Dosage: 50 MG, (HE CUT HIS VIAGRA 100MG INTO 2 AND TAKES 50 MG NOW)
  6. VIAGRA [Interacting]
     Active Substance: SILDENAFIL CITRATE
     Dosage: UNK
  7. COBICISTAT [Interacting]
     Active Substance: COBICISTAT
     Indication: Antiretroviral therapy
     Dosage: UNK
  8. INTELENCE [Interacting]
     Active Substance: ETRAVIRINE
     Indication: HIV infection
     Dosage: 400 MG, DAILY (200MG 2 TABLETS A DAY)
     Route: 048
     Dates: start: 201805, end: 201805
  9. INTELENCE [Interacting]
     Active Substance: ETRAVIRINE
     Dosage: 200 MG, 1X/DAY
     Route: 048
  10. PREZCOBIX [Interacting]
     Active Substance: COBICISTAT\DARUNAVIR ETHANOLATE
     Indication: HIV infection
     Dosage: 1 DF, DAILY (1 TABLET A DAY WITH FOOD BY MOUTH)
     Route: 048
     Dates: start: 2017, end: 201805
  11. TIVICAY [Interacting]
     Active Substance: DOLUTEGRAVIR SODIUM
     Indication: HIV infection
     Dosage: UNK
  12. TIVICAY [Interacting]
     Active Substance: DOLUTEGRAVIR SODIUM
     Dosage: 50 MG
  13. JULUCA [Concomitant]
     Active Substance: DOLUTEGRAVIR SODIUM\RILPIVIRINE HYDROCHLORIDE
     Indication: HIV infection
     Dosage: UNK, 1X/DAY (TAKES ONCE A DAY)
     Dates: start: 2018
  14. MARAVIROC [Concomitant]
     Active Substance: MARAVIROC
     Dosage: UNK
  15. SELZENTRY [Concomitant]
     Active Substance: MARAVIROC
     Indication: HIV infection
     Dosage: 300 MG, 1X/DAY
     Route: 048
  16. SELZENTRY [Concomitant]
     Active Substance: MARAVIROC
     Dosage: 150 MG, UNK
  17. SELZENTRY [Concomitant]
     Active Substance: MARAVIROC
     Dosage: 600 MG, DAILY (2 PILLS A DAY )
  18. SELZENTRY [Concomitant]
     Active Substance: MARAVIROC
     Dosage: 1200 MG, DAILY (4 PILLS A DAY )
  19. SELZENTRY [Concomitant]
     Active Substance: MARAVIROC
     Dosage: 1800 MG, UNK (SIX 300 MG)
  20. VESICARE [Concomitant]
     Active Substance: SOLIFENACIN SUCCINATE
     Indication: Hypertonic bladder
     Dosage: 5 MG, UNK

REACTIONS (12)
  - Drug ineffective [Recovered/Resolved]
  - Intentional product misuse [Unknown]
  - Potentiating drug interaction [Unknown]
  - Headache [Unknown]
  - Feeling abnormal [Recovering/Resolving]
  - Fatigue [Recovering/Resolving]
  - Weight fluctuation [Unknown]
  - Back pain [Not Recovered/Not Resolved]
  - Pain [Recovering/Resolving]
  - Malaise [Recovering/Resolving]
  - Nausea [Recovering/Resolving]
  - Muscle spasms [Recovering/Resolving]

NARRATIVE: CASE EVENT DATE: 20180501
